FAERS Safety Report 11794282 (Version 7)
Quarter: 2021Q3

REPORT INFORMATION
  Report Type: Spontaneous
  Country: FR (occurrence: FR)
  Receive Date: 20151202
  Receipt Date: 20210715
  Transmission Date: 20211014
  Serious: Yes (Life-Threatening, Hospitalization, Other)
  Sender: FDA-Public Use
  Company Number: FR-AUROBINDO-AUR-APL-2015-10805

PATIENT
  Age: 31 Year
  Sex: Female

DRUGS (36)
  1. FOSFOMYCIN [Suspect]
     Active Substance: FOSFOMYCIN
     Indication: URINARY TRACT INFECTION
     Dosage: UNK
     Route: 042
  2. LINEZOLID. [Suspect]
     Active Substance: LINEZOLID
     Indication: PSEUDOMONAS INFECTION
  3. PARACETAMOL [Suspect]
     Active Substance: ACETAMINOPHEN
     Indication: PRODUCT USED FOR UNKNOWN INDICATION
     Dosage: UNK
     Route: 065
  4. AZTREONAM. [Suspect]
     Active Substance: AZTREONAM
     Indication: ENTEROCOCCAL INFECTION
  5. RIFAMPICIN [Suspect]
     Active Substance: RIFAMPIN
     Indication: URINARY TRACT INFECTION
  6. VANCOMYCIN [Suspect]
     Active Substance: VANCOMYCIN
     Indication: PSEUDOMONAS INFECTION
  7. ENOXAPARINE [Suspect]
     Active Substance: ENOXAPARIN
     Indication: PRODUCT USED FOR UNKNOWN INDICATION
     Dosage: UNK
     Route: 065
  8. FOSFOMYCIN [Suspect]
     Active Substance: FOSFOMYCIN
     Indication: MENINGITIS BACTERIAL
  9. AZTREONAM. [Suspect]
     Active Substance: AZTREONAM
     Indication: SERRATIA INFECTION
  10. GENTAMICIN. [Suspect]
     Active Substance: GENTAMICIN
     Indication: PSEUDOMONAS INFECTION
  11. VANCOMYCIN [Suspect]
     Active Substance: VANCOMYCIN
     Indication: ENCEPHALOMYELITIS
  12. RIFAMPICIN [Suspect]
     Active Substance: RIFAMPIN
     Indication: MENINGITIS
  13. XENETIX [Suspect]
     Active Substance: IOBITRIDOL
     Indication: SKIN TEST
     Dosage: UNK
     Route: 065
  14. PANTOPRAZOLE [Suspect]
     Active Substance: PANTOPRAZOLE
     Indication: SKIN TEST
     Dosage: UNK
     Route: 065
  15. CEFOTAXIME [Suspect]
     Active Substance: CEFOTAXIME SODIUM
     Indication: PRODUCT USED FOR UNKNOWN INDICATION
     Dosage: UNK
     Route: 065
  16. COTRIMOXAZOLE [Suspect]
     Active Substance: SULFAMETHOXAZOLE\TRIMETHOPRIM
     Indication: ENTEROCOCCAL INFECTION
  17. VANCOMYCIN [Suspect]
     Active Substance: VANCOMYCIN
     Indication: URINARY TRACT INFECTION
     Dosage: UNK
     Route: 042
  18. CIPROFLOXACIN. [Suspect]
     Active Substance: CIPROFLOXACIN
     Indication: ENTEROCOCCAL INFECTION
     Dosage: UNK
     Route: 065
  19. FOSFOMYCIN [Suspect]
     Active Substance: FOSFOMYCIN
     Indication: ENTEROCOCCAL INFECTION
     Dosage: UNK
     Route: 042
  20. LINEZOLID. [Suspect]
     Active Substance: LINEZOLID
     Indication: ENTEROCOCCAL INFECTION
     Dosage: UNK
     Route: 065
  21. AZTREONAM. [Suspect]
     Active Substance: AZTREONAM
     Indication: MENINGITIS
  22. DAPTOMYCIN. [Suspect]
     Active Substance: DAPTOMYCIN
     Indication: PRODUCT USED FOR UNKNOWN INDICATION
     Dosage: UNK
     Route: 065
  23. GENTAMICIN. [Suspect]
     Active Substance: GENTAMICIN
     Indication: PSEUDOMONAS INFECTION
     Dosage: UNK
     Route: 065
  24. GENTAMICIN. [Suspect]
     Active Substance: GENTAMICIN
     Indication: ENTEROCOCCAL INFECTION
  25. VANCOMYCIN [Suspect]
     Active Substance: VANCOMYCIN
     Indication: MENINGITIS
  26. CEFTRIAXONE. [Suspect]
     Active Substance: CEFTRIAXONE
     Indication: PRODUCT USED FOR UNKNOWN INDICATION
     Dosage: UNK
     Route: 065
  27. COTRIMOXAZOLE [Suspect]
     Active Substance: SULFAMETHOXAZOLE\TRIMETHOPRIM
     Indication: PSEUDOMONAS INFECTION
  28. GENTAMICIN. [Suspect]
     Active Substance: GENTAMICIN
     Indication: ENTEROCOCCAL INFECTION
  29. RIFAMPICIN [Suspect]
     Active Substance: RIFAMPIN
     Indication: PSEUDOMONAS INFECTION
  30. CIPROFLOXACIN. [Suspect]
     Active Substance: CIPROFLOXACIN
     Indication: PSEUDOMONAS INFECTION
  31. FOSFOMYCIN [Suspect]
     Active Substance: FOSFOMYCIN
     Indication: ENCEPHALOMYELITIS
     Dosage: UNK
     Route: 042
  32. AZTREONAM. [Suspect]
     Active Substance: AZTREONAM
     Indication: URINARY TRACT INFECTION
  33. COTRIMOXAZOLE [Suspect]
     Active Substance: SULFAMETHOXAZOLE\TRIMETHOPRIM
     Indication: ENTEROCOCCAL INFECTION
     Dosage: UNK
     Route: 065
  34. AZTREONAM. [Suspect]
     Active Substance: AZTREONAM
     Indication: PSEUDOMONAS INFECTION
     Dosage: UNK
     Route: 065
  35. COTRIMOXAZOLE [Suspect]
     Active Substance: SULFAMETHOXAZOLE\TRIMETHOPRIM
     Indication: PSEUDOMONAS INFECTION
  36. RIFAMPICIN [Suspect]
     Active Substance: RIFAMPIN
     Indication: ENTEROCOCCAL INFECTION
     Dosage: UNK
     Route: 065

REACTIONS (22)
  - Feeling hot [Recovering/Resolving]
  - Drug resistance [Unknown]
  - Hypotension [Recovered/Resolved]
  - Purpura [Recovered/Resolved]
  - Enterococcal infection [Recovering/Resolving]
  - Dizziness [Unknown]
  - Hepatic cytolysis [Recovered/Resolved]
  - Pyrexia [Recovered/Resolved]
  - Condition aggravated [Recovering/Resolving]
  - Drug eruption [Unknown]
  - Erythema [Recovered/Resolved]
  - Oedema peripheral [Recovered/Resolved]
  - Eosinophilia [Recovered/Resolved]
  - Human herpesvirus 6 infection [Recovering/Resolving]
  - Skin test positive [Unknown]
  - Malaise [Recovering/Resolving]
  - Rash [Recovered/Resolved]
  - Eosinophil count increased [Recovering/Resolving]
  - Rash maculo-papular [Unknown]
  - Drug reaction with eosinophilia and systemic symptoms [Recovered/Resolved]
  - Brain abscess [Recovering/Resolving]
  - Epstein-Barr virus test positive [Recovering/Resolving]
